FAERS Safety Report 8840468 (Version 1)
Quarter: 2012Q4

REPORT INFORMATION
  Report Type: 
  Country: US (occurrence: US)
  Receive Date: 20121015
  Receipt Date: 20121015
  Transmission Date: 20130627
  Serious: Yes (Other)
  Sender: FDA-Public Use
  Company Number: US-ASTRAZENECA-2012SE77022

PATIENT
  Age: 55 Year
  Sex: Female
  Weight: 77.1 kg

DRUGS (2)
  1. ARIMIDEX [Suspect]
     Indication: BREAST CANCER
     Route: 048
     Dates: start: 200609, end: 201108
  2. METHADONE [Concomitant]
     Indication: PAIN
     Dosage: THREE TIMES A DAY
     Route: 048
     Dates: start: 201210

REACTIONS (8)
  - Disease progression [Unknown]
  - Breast cancer metastatic [Unknown]
  - Malignant ascites [Unknown]
  - Feeling abnormal [Unknown]
  - Gastrooesophageal reflux disease [Unknown]
  - Dysphagia [Unknown]
  - Pain [Unknown]
  - Vulvovaginal pain [Unknown]
